FAERS Safety Report 8214050-0 (Version None)
Quarter: 2012Q1

REPORT INFORMATION
  Report Type: 
  Country: None (occurrence: None)
  Receive Date: 20120314
  Receipt Date: 20120314
  Transmission Date: 20120608
  Serious: Yes (Other)
  Sender: FDA-Public Use
  Company Number: None

PATIENT
  Age: 6 Year
  Sex: Male
  Weight: 22.6799 kg

DRUGS (1)
  1. REMERON [Suspect]
     Indication: SLEEP DISORDER
     Dosage: 15 MG QHS ORAL
     Route: 048
     Dates: start: 20120101, end: 20120222

REACTIONS (2)
  - CONVULSION [None]
  - DIZZINESS [None]
